FAERS Safety Report 15735733 (Version 1)
Quarter: 2018Q4

REPORT INFORMATION
  Report Type: Spontaneous
  Country: US (occurrence: US)
  Receive Date: 20181217
  Receipt Date: 20181217
  Transmission Date: 20190205
  Serious: No
  Sender: FDA-Public Use
  Company Number: None

PATIENT
  Age: 42 Year
  Sex: Male

DRUGS (1)
  1. FLUOXETINE [Suspect]
     Active Substance: FLUOXETINE HYDROCHLORIDE
     Dosage: 20 MG CAP (SD) # 17 1 DAILY BY MOUTH
     Route: 048
     Dates: start: 201811, end: 20181117

REACTIONS (4)
  - Delusion [None]
  - Mental disorder [None]
  - Completed suicide [None]
  - Nightmare [None]

NARRATIVE: CASE EVENT DATE: 20181111
